FAERS Safety Report 9665642 (Version 1)
Quarter: 2013Q4

REPORT INFORMATION
  Report Type: Spontaneous
  Country: US (occurrence: None)
  Receive Date: 20131031
  Receipt Date: 20131031
  Transmission Date: 20140711
  Serious: Yes (Hospitalization)
  Sender: FDA-Public Use
  Company Number: None

PATIENT
  Age: 72 Year
  Sex: Male
  Weight: 105.4 kg

DRUGS (1)
  1. AMOXICILLIN/CLAVULANATE [Suspect]
     Indication: BRONCHITIS
     Dates: start: 20130907, end: 20130914

REACTIONS (4)
  - Rash [None]
  - Urticaria [None]
  - Pruritus [None]
  - Hypotension [None]
